FAERS Safety Report 8907848 (Version 1)
Quarter: 2012Q4

REPORT INFORMATION
  Report Type: 
  Country: US (occurrence: US)
  Receive Date: 20121113
  Receipt Date: 20121113
  Transmission Date: 20130627
  Serious: No
  Sender: FDA-Public Use
  Company Number: US-AMGEN-USASP2012010332

PATIENT
  Age: 80 Year
  Sex: Female

DRUGS (10)
  1. ENBREL [Suspect]
     Indication: PRODUCT USED FOR UNKNOWN INDICATION
     Dosage: 50 mg, qwk
     Route: 058
  2. NORVASC [Concomitant]
     Dosage: 10 mg, UNK
  3. SYNTHROID [Concomitant]
  4. LISINOPRIL [Concomitant]
     Dosage: 2.5 mg, UNK
  5. NEXIUM                             /01479302/ [Concomitant]
     Dosage: 20 mg, UNK
  6. TENORMIN [Concomitant]
     Dosage: 25 mg, UNK
  7. MULTIVITAMIN                       /00097801/ [Concomitant]
  8. CRANBERRY                          /01512301/ [Concomitant]
     Dosage: 1000 mg, UNK
  9. SENNA LAX [Concomitant]
     Dosage: 8.6 mg, UNK
  10. PROBIOTIC [Concomitant]

REACTIONS (1)
  - Urinary tract infection [Recovered/Resolved]
